FAERS Safety Report 20077158 (Version 1)
Quarter: 2021Q4

REPORT INFORMATION
  Report Type: Report from Study
  Country: US (occurrence: US)
  Receive Date: 20211116
  Receipt Date: 20211116
  Transmission Date: 20220303
  Serious: No
  Sender: FDA-Public Use
  Company Number: US-TG THERAPEUTICS INC.-TGT002083

PATIENT
  Age: 71 Year
  Sex: Female

DRUGS (4)
  1. UMBRALISIB [Suspect]
     Active Substance: UMBRALISIB
     Indication: Extranodal marginal zone B-cell lymphoma (MALT type)
     Dosage: 800 MILLIGRAM, QD
     Route: 048
  2. BACTRIM [Concomitant]
     Active Substance: SULFAMETHOXAZOLE\TRIMETHOPRIM
     Indication: Product used for unknown indication
  3. LEVAQUIN [Concomitant]
     Active Substance: LEVOFLOXACIN
  4. ACYCLOVIR [Concomitant]
     Active Substance: ACYCLOVIR
     Indication: Product used for unknown indication

REACTIONS (1)
  - Hallucination [Unknown]

NARRATIVE: CASE EVENT DATE: 20210803
